FAERS Safety Report 22267289 (Version 2)
Quarter: 2023Q2

REPORT INFORMATION
  Report Type: Spontaneous
  Country: TN (occurrence: TN)
  Receive Date: 20230428
  Receipt Date: 20230511
  Transmission Date: 20230722
  Serious: Yes (Other)
  Sender: FDA-Public Use
  Company Number: TN-BAUSCHBL-2023BNL003552

PATIENT
  Age: 64 Year
  Sex: Female

DRUGS (2)
  1. LOTEMAX [Suspect]
     Active Substance: LOTEPREDNOL ETABONATE
     Indication: Postoperative care
     Route: 061
     Dates: start: 20230301, end: 20230307
  2. OFLOCOL [Concomitant]
     Indication: Prophylaxis
     Route: 061
     Dates: start: 20230301, end: 20230316

REACTIONS (2)
  - Cyclitic membrane [Recovered/Resolved]
  - Drug ineffective [Unknown]

NARRATIVE: CASE EVENT DATE: 20230307
